FAERS Safety Report 9943135 (Version 1)
Quarter: 2014Q1

REPORT INFORMATION
  Report Type: Spontaneous
  Country: GB (occurrence: GB)
  Receive Date: 20140303
  Receipt Date: 20140303
  Transmission Date: 20141002
  Serious: Yes (Other)
  Sender: FDA-Public Use
  Company Number: CHPA2014GB003210

PATIENT
  Sex: 0

DRUGS (1)
  1. OTRIVIN [Suspect]

REACTIONS (1)
  - Drug dependence [Unknown]
